FAERS Safety Report 8243945 (Version 2)
Quarter: 2013Q2

REPORT INFORMATION
  Report Type: Spontaneous
  Country: US (occurrence: US)
  Receive Date: 20111114
  Receipt Date: 20130423
  Transmission Date: 20140414
  Serious: Yes (Other)
  Sender: FDA-Public Use
  Company Number: US-BAYER-2011-108923

PATIENT
  Age: 57 Year
  Sex: Male

DRUGS (2)
  1. AVELOX [Suspect]
     Indication: PNEUMONIA
     Dosage: 400 MG, QD
     Route: 048
     Dates: start: 20111011
  2. XANAX [Concomitant]

REACTIONS (5)
  - Carpal tunnel syndrome [Recovering/Resolving]
  - Tendon disorder [Recovering/Resolving]
  - Achilles tendon discomfort [Recovering/Resolving]
  - Gait disturbance [Recovering/Resolving]
  - Unevaluable event [Recovering/Resolving]
